FAERS Safety Report 25392817 (Version 1)
Quarter: 2025Q2

REPORT INFORMATION
  Report Type: Report from Study
  Country: US (occurrence: US)
  Receive Date: 20250603
  Receipt Date: 20250603
  Transmission Date: 20250717
  Serious: Yes (Other)
  Sender: MALLINCKRODT
  Company Number: US-MALLINCKRODT-MNK202502552

PATIENT
  Age: 27 Year
  Sex: Female

DRUGS (6)
  1. CORTICOTROPIN [Suspect]
     Active Substance: CORTICOTROPIN
     Indication: Uveitis
     Dates: start: 20230316
  2. CORTICOTROPIN [Suspect]
     Active Substance: CORTICOTROPIN
     Route: 058
     Dates: start: 2025
  3. CORTICOTROPIN [Suspect]
     Active Substance: CORTICOTROPIN
     Dates: start: 202502, end: 2025
  4. PREDNISONE [Suspect]
     Active Substance: PREDNISONE
     Indication: Product used for unknown indication
  5. REMICADE [Concomitant]
     Active Substance: INFLIXIMAB
     Indication: Eye disorder
  6. HUMIRA [Concomitant]
     Active Substance: ADALIMUMAB
     Indication: Product used for unknown indication

REACTIONS (8)
  - Uveitis [Unknown]
  - Retinitis [Unknown]
  - Optic neuritis [Unknown]
  - Blindness [Unknown]
  - Cataract [Unknown]
  - Hyperphagia [Unknown]
  - Brain fog [Unknown]
  - Irritability [Unknown]
